FAERS Safety Report 22130916 (Version 1)
Quarter: 2023Q1

REPORT INFORMATION
  Report Type: Spontaneous
  Country: US (occurrence: None)
  Receive Date: 20230322
  Receipt Date: 20230322
  Transmission Date: 20230418
  Serious: Yes (Life-Threatening, Disabling, Other)
  Sender: FDA-Public Use
  Company Number: None

PATIENT
  Age: 70 Year
  Sex: Female
  Weight: 67.5 kg

DRUGS (8)
  1. NURTEC ODT [Suspect]
     Active Substance: RIMEGEPANT SULFATE
     Indication: Migraine
     Dosage: OTHER QUANTITY : 1 TABLET(S);?OTHER FREQUENCY : EVERY OTHER DAY;?
     Route: 048
     Dates: start: 20220308, end: 20220315
  2. LEVOTHYROXINE [Concomitant]
     Active Substance: LEVOTHYROXINE
  3. LIOTHYRONINE [Concomitant]
     Active Substance: LIOTHYRONINE
  4. DILACOR XR [Concomitant]
     Active Substance: DILTIAZEM HYDROCHLORIDE
  5. Allerclert-D [Concomitant]
  6. VITAMIN B2 [Concomitant]
     Active Substance: RIBOFLAVIN
  7. MAGNESIUM [Concomitant]
     Active Substance: MAGNESIUM
  8. THERATEARS [Concomitant]
     Active Substance: CARBOXYMETHYLCELLULOSE SODIUM

REACTIONS (2)
  - Insomnia [None]
  - Suicidal ideation [None]

NARRATIVE: CASE EVENT DATE: 20220315
